FAERS Safety Report 12199884 (Version 3)
Quarter: 2016Q2

REPORT INFORMATION
  Report Type: Report from Study
  Country: AT (occurrence: AT)
  Receive Date: 20160322
  Receipt Date: 20160523
  Transmission Date: 20160815
  Serious: Yes (Death, Hospitalization, Other)
  Sender: FDA-Public Use
  Company Number: AT-ABBVIE-16P-009-1586153-00

PATIENT
  Age: 76 Year
  Sex: Male
  Weight: 59 kg

DRUGS (2)
  1. PANTOLOC [Concomitant]
     Active Substance: PANTOPRAZOLE SODIUM
     Indication: PRODUCT USED FOR UNKNOWN INDICATION
  2. DUODOPA [Suspect]
     Active Substance: CARBIDOPA\LEVODOPA
     Indication: PARKINSON^S DISEASE
     Dosage: 16 H THERAPY:MD: 11.0 MLCR: 4.0 ML/HED: 2.0 ML
     Route: 050
     Dates: start: 20141204

REACTIONS (7)
  - Dehydration [Not Recovered/Not Resolved]
  - Death [Fatal]
  - Stoma site hypergranulation [Not Recovered/Not Resolved]
  - Hypersomnia [Unknown]
  - Helicobacter infection [Unknown]
  - Duodenal ulcer [Not Recovered/Not Resolved]
  - Aggression [Not Recovered/Not Resolved]

NARRATIVE: CASE EVENT DATE: 20160314
